FAERS Safety Report 5056140-X (Version None)
Quarter: 2006Q3

REPORT INFORMATION
  Report Type: 
  Country: None (occurrence: None)
  Receive Date: 20060720
  Receipt Date: 20060518
  Transmission Date: 20061208
  Serious: Yes (Hospitalization)
  Sender: FDA-Public Use
  Company Number: JP-JPN-A200601640

PATIENT
  Age: 81 Year
  Sex: Female
  Weight: 31 kg

DRUGS (2)
  1. PAXIL [Suspect]
     Indication: DEPRESSION
     Route: 048
     Dates: start: 20060427, end: 20060518
  2. THYRADIN S [Concomitant]
     Indication: HYPOTHYROIDISM
     Dosage: 25MCG PER DAY
     Route: 048
     Dates: start: 20060512

REACTIONS (5)
  - BOWEL SOUNDS ABNORMAL [None]
  - CONSTIPATION [None]
  - INTESTINAL OBSTRUCTION [None]
  - NAUSEA [None]
  - PYREXIA [None]
